FAERS Safety Report 4521922-7 (Version None)
Quarter: 2004Q4

REPORT INFORMATION
  Report Type: 
  Country: None (occurrence: None)
  Receive Date: 20041206
  Receipt Date: 20041124
  Transmission Date: 20050328
  Serious: Yes (Hospitalization, Other)
  Sender: FDA-Public Use
  Company Number: 2004099200

PATIENT
  Age: 68 Year
  Sex: Male
  Weight: 95.2554 kg

DRUGS (1)
  1. CLINDAMYCIN HYDROCHLORIDE CAPSULE (CLINDAMYCIN HYDROCHLORIDE) [Suspect]
     Indication: SEPSIS
     Dosage: ORAL
     Route: 048
     Dates: start: 20040923, end: 20041101

REACTIONS (2)
  - LIVER DISORDER [None]
  - OESOPHAGEAL HAEMORRHAGE [None]
